FAERS Safety Report 6426585-1 (Version None)
Quarter: 2009Q4

REPORT INFORMATION
  Report Type: 
  Country: None (occurrence: None)
  Receive Date: 20091016
  Receipt Date: 20090827
  Transmission Date: 20100525
  Serious: Yes (Other)
  Sender: FDA-Public Use
  Company Number: 86648

PATIENT
  Age: 63 Year
  Sex: Male

DRUGS (1)
  1. LEUCOVORIN CALCIUM [Suspect]
     Dates: start: 20090303

REACTIONS (3)
  - BRONCHOSPASM [None]
  - DYSPNOEA [None]
  - FLUSHING [None]
